FAERS Safety Report 7396275-X (Version None)
Quarter: 2011Q2

REPORT INFORMATION
  Report Type: 
  Country: None (occurrence: None)
  Receive Date: 20110406
  Receipt Date: 20110330
  Transmission Date: 20111010
  Serious: Yes (Other)
  Sender: FDA-Public Use
  Company Number: US-JNJFOC-20110400372

PATIENT
  Age: 47 Year
  Sex: Female
  Weight: 83.92 kg

DRUGS (9)
  1. BENADRYL [Suspect]
     Indication: ANAPHYLACTIC REACTION
     Route: 048
  2. BENADRYL [Suspect]
     Route: 030
  3. PREDNISONE [Suspect]
     Indication: ANAPHYLACTIC REACTION
  4. BENADRYL [Suspect]
     Route: 048
  5. BENADRYL [Suspect]
     Route: 030
  6. MULTI-VITAMINS [Concomitant]
     Indication: ROUTINE HEALTH MAINTENANCE
     Route: 050
  7. MOTRIN [Concomitant]
     Indication: HEADACHE
     Route: 065
  8. EPINEPHRINE [Suspect]
     Indication: ANAPHYLACTIC REACTION
     Route: 065
  9. HYDROCHLOROTHIAZIDE [Concomitant]
     Indication: MENSTRUAL DISORDER
     Route: 065

REACTIONS (3)
  - IMPAIRED WORK ABILITY [None]
  - MALAISE [None]
  - DYSPEPSIA [None]
